FAERS Safety Report 9340402 (Version 2)
Quarter: 2013Q3

REPORT INFORMATION
  Report Type: Report from Study
  Country: BR (occurrence: BR)
  Receive Date: 20130610
  Receipt Date: 20130814
  Transmission Date: 20140515
  Serious: No
  Sender: FDA-Public Use
  Company Number: PHHY2013BR058401

PATIENT
  Sex: Female
  Weight: 65 kg

DRUGS (4)
  1. ACLASTA [Suspect]
     Indication: OSTEOPENIA
     Dosage: 5 MG, UNK
     Route: 042
     Dates: start: 201305
  2. CALCIUM D3 [Suspect]
     Indication: OSTEOPENIA
     Dosage: 600 MG (1 TABLET), DAILY
     Route: 048
     Dates: start: 201306
  3. GLUCOSAMINE + CHONDROITIN [Concomitant]
     Indication: OSTEOPENIA
     Dosage: 150 MG (1 TABLET), DAILY
     Route: 048
     Dates: start: 201301
  4. GLUCOSAMINE + CHONDROITIN [Concomitant]
     Indication: OSTEOARTHRITIS

REACTIONS (4)
  - Arthralgia [Not Recovered/Not Resolved]
  - Joint swelling [Not Recovered/Not Resolved]
  - Bone pain [Recovering/Resolving]
  - Pain in extremity [Recovering/Resolving]
